FAERS Safety Report 23876071 (Version 1)
Quarter: 2024Q2

REPORT INFORMATION
  Report Type: Spontaneous
  Country: SE (occurrence: SE)
  Receive Date: 20240520
  Receipt Date: 20240520
  Transmission Date: 20240716
  Serious: Yes (Hospitalization)
  Sender: FDA-Public Use
  Company Number: SE-PURDUE-USA-2024-0309672

PATIENT
  Age: 52 Year
  Sex: Male

DRUGS (2)
  1. MORPHINE [Suspect]
     Active Substance: MORPHINE
     Indication: Product used for unknown indication
     Dosage: 20-30 TABLETS
     Route: 065
     Dates: start: 20240424, end: 20240424
  2. PARAFLEX [Suspect]
     Active Substance: CHLORZOXAZONE
     Indication: Product used for unknown indication
     Dosage: 50-100 TABLETS
     Route: 065
     Dates: start: 20240424, end: 20240424

REACTIONS (10)
  - Intentional overdose [Recovering/Resolving]
  - Ventricular extrasystoles [Recovering/Resolving]
  - Suicide attempt [Recovering/Resolving]
  - Blood lactic acid increased [Recovering/Resolving]
  - Alcohol poisoning [Recovering/Resolving]
  - Toxicity to various agents [Recovering/Resolving]
  - Depressed level of consciousness [Recovering/Resolving]
  - Pyrexia [Recovering/Resolving]
  - White blood cell count increased [Recovering/Resolving]
  - Sinus tachycardia [Recovering/Resolving]

NARRATIVE: CASE EVENT DATE: 20240424
